FAERS Safety Report 16689227 (Version 1)
Quarter: 2019Q3

REPORT INFORMATION
  Report Type: Spontaneous
  Country: US (occurrence: US)
  Receive Date: 20190809
  Receipt Date: 20190809
  Transmission Date: 20191004
  Serious: Yes (Hospitalization, Disabling, Other)
  Sender: FDA-Public Use
  Company Number: US-MYLANLABS-2019M1073511

PATIENT
  Age: 82 Year
  Sex: Male

DRUGS (7)
  1. DISULFIRAM. [Interacting]
     Active Substance: DISULFIRAM
     Indication: BABESIOSIS
  2. ARIPIPRAZOLE. [Concomitant]
     Active Substance: ARIPIPRAZOLE
     Indication: PSYCHOTHERAPY
     Dosage: UNK
     Route: 065
  3. DISULFIRAM. [Suspect]
     Active Substance: DISULFIRAM
     Indication: LYME DISEASE
     Dosage: 500 MILLIGRAM, QD
     Route: 048
     Dates: start: 201801
  4. IMIPRAMINE [Interacting]
     Active Substance: IMIPRAMINE
     Indication: BLADDER DYSFUNCTION
     Dosage: LOW DOSE
     Route: 065
  5. AMPHETAMINE [Concomitant]
     Active Substance: AMPHETAMINE
     Indication: PSYCHOTHERAPY
     Dosage: UNK
     Route: 065
  6. KETAMINE [Concomitant]
     Active Substance: KETAMINE
     Indication: DEPRESSION
     Dosage: ADMINISTERED EVERY 6 WEEKS
     Route: 041
     Dates: start: 201604
  7. DULOXETINE. [Concomitant]
     Active Substance: DULOXETINE
     Indication: PSYCHOTHERAPY
     Dosage: UNK
     Route: 065

REACTIONS (6)
  - Syncope [Recovered/Resolved]
  - Concussion [Recovered/Resolved]
  - Fatigue [Unknown]
  - Drug level increased [Recovered/Resolved]
  - Drug interaction [Recovered/Resolved]
  - Off label use [Recovered/Resolved]
